FAERS Safety Report 18438130 (Version 5)
Quarter: 2021Q4

REPORT INFORMATION
  Report Type: Spontaneous
  Country: None (occurrence: US)
  Receive Date: 20201029
  Receipt Date: 20211122
  Transmission Date: 20220303
  Serious: No
  Sender: FDA-Public Use
  Company Number: US-AKCEA THERAPEUTICS-2020IS001469

PATIENT
  Age: 67 Year
  Sex: Female

DRUGS (5)
  1. TEGSEDI [Suspect]
     Active Substance: INOTERSEN SODIUM
     Indication: Hereditary neuropathic amyloidosis
     Route: 058
     Dates: start: 20191207
  2. DEVICE [Suspect]
     Active Substance: DEVICE
  3. TEGSEDI [Suspect]
     Active Substance: INOTERSEN SODIUM
     Route: 058
     Dates: start: 202102
  4. TEGSEDI [Suspect]
     Active Substance: INOTERSEN SODIUM
     Route: 058
     Dates: start: 20210402
  5. TEGSEDI [Suspect]
     Active Substance: INOTERSEN SODIUM
     Route: 058
     Dates: end: 20210522

REACTIONS (19)
  - Urine protein/creatinine ratio increased [Unknown]
  - Protein urine present [Not Recovered/Not Resolved]
  - Urinary occult blood positive [Unknown]
  - Urine abnormality [Not Recovered/Not Resolved]
  - Nitrite urine present [Not Recovered/Not Resolved]
  - Urine leukocyte esterase positive [Not Recovered/Not Resolved]
  - Pyuria [Unknown]
  - Bacterial test positive [Not Recovered/Not Resolved]
  - Urinary sediment present [Not Recovered/Not Resolved]
  - Red blood cells urine positive [Unknown]
  - Urine ketone body present [Not Recovered/Not Resolved]
  - Urinary casts [Not Recovered/Not Resolved]
  - Urine analysis abnormal [Not Recovered/Not Resolved]
  - White blood cells urine positive [Not Recovered/Not Resolved]
  - Fungal test positive [Unknown]
  - Chromaturia [Not Recovered/Not Resolved]
  - Urine transitional cells present [Not Recovered/Not Resolved]
  - Off label use [Recovered/Resolved]
  - Creatinine urine abnormal [Unknown]

NARRATIVE: CASE EVENT DATE: 20201001
